FAERS Safety Report 8990928 (Version 1)
Quarter: 2012Q4

REPORT INFORMATION
  Report Type: Spontaneous
  Country: DE (occurrence: None)
  Receive Date: 20121221
  Receipt Date: 20121221
  Transmission Date: 20130627
  Serious: Yes (Life-Threatening, Hospitalization, Other)
  Sender: FDA-Public Use
  Company Number: 2012P1067428

PATIENT
  Age: 56 Year
  Sex: Male
  Weight: 90 kg

DRUGS (8)
  1. HEPARIN [Suspect]
     Indication: ANTICOAGULANT THERAPY
     Route: 042
  2. HEPARIN [Suspect]
     Indication: PROPHYLAXIS
     Route: 042
  3. HEPARIN [Suspect]
     Indication: TRANSPLANT
     Route: 042
  4. ENOXAPARIN [Suspect]
     Indication: ANTICOAGULANT THERAPY
  5. ENOXAPARIN [Suspect]
     Indication: PROPHYLAXIS
  6. ENOXAPARIN [Suspect]
     Indication: TRANSPLANT
  7. TACROLIMUS [Concomitant]
  8. PREDNISOLONE [Concomitant]

REACTIONS (25)
  - Coagulopathy [None]
  - Lactic acidosis [None]
  - Vascular resistance systemic decreased [None]
  - Respiratory failure [None]
  - Skin lesion [None]
  - Injection site erythema [None]
  - Heparin-induced thrombocytopenia [None]
  - Transplant failure [None]
  - Multi-organ failure [None]
  - Hepatic vein thrombosis [None]
  - Portal vein thrombosis [None]
  - Continuous haemodiafiltration [None]
  - Pupil fixed [None]
  - Brain oedema [None]
  - Myocardial ischaemia [None]
  - Liver transplant [None]
  - Surgical procedure repeated [None]
  - Encephalopathy [None]
  - Anti-erythrocyte antibody [None]
  - Anaemia [None]
  - Cerebral disorder [None]
  - Cardiac failure [None]
  - Pulmonary arterial hypertension [None]
  - Right ventricular failure [None]
  - Tricuspid valve incompetence [None]
